FAERS Safety Report 15318920 (Version 1)
Quarter: 2018Q3

REPORT INFORMATION
  Report Type: Spontaneous
  Country: US (occurrence: US)
  Receive Date: 20180820
  Receipt Date: 20180820
  Transmission Date: 20181010
  Serious: No
  Sender: FDA-Public Use
  Company Number: None

PATIENT
  Age: 78 Year
  Sex: Male

DRUGS (1)
  1. PREDNISONE 5 MG TAB WATSON [Suspect]
     Active Substance: PREDNISONE
     Route: 048

REACTIONS (1)
  - Abdominal discomfort [None]

NARRATIVE: CASE EVENT DATE: 20180820
